FAERS Safety Report 4922100-X (Version None)
Quarter: 2006Q1

REPORT INFORMATION
  Report Type: 
  Country: None (occurrence: None)
  Receive Date: 20060222
  Receipt Date: 20060222
  Transmission Date: 20060701
  Serious: Yes (Life-Threatening, Hospitalization)
  Sender: FDA-Public Use
  Company Number: None

PATIENT
  Age: 83 Year
  Sex: Female

DRUGS (12)
  1. WARFARIN SODIUM [Suspect]
     Indication: DEEP VEIN THROMBOSIS
     Dosage: 4 MG PO DAILY
     Route: 048
  2. ASPIRIN [Suspect]
     Indication: CARDIAC DISORDER
     Dosage: 81MG PO DAILY
     Route: 048
  3. ASPIRIN [Suspect]
     Indication: PROPHYLAXIS
     Dosage: 81MG PO DAILY
     Route: 048
  4. MIACALCIN [Concomitant]
  5. ASPIRIN [Concomitant]
  6. CAPOTEN [Concomitant]
  7. ZINC [Concomitant]
  8. VIT C [Concomitant]
  9. PHENERGAN [Concomitant]
  10. KEFLEX [Concomitant]
  11. CALCIUM GLUCONATE [Concomitant]
  12. SENNA [Concomitant]

REACTIONS (4)
  - GASTROINTESTINAL HAEMORRHAGE [None]
  - HYPOTENSION [None]
  - SEPSIS [None]
  - SYNCOPE [None]
